FAERS Safety Report 19498779 (Version 2)
Quarter: 2021Q3

REPORT INFORMATION
  Report Type: Spontaneous
  Country: US (occurrence: US)
  Receive Date: 20210706
  Receipt Date: 20210803
  Transmission Date: 20211014
  Serious: Yes (Other)
  Sender: FDA-Public Use
  Company Number: US-AMERICAN REGENT INC-2021001720

PATIENT
  Age: 4 Decade
  Sex: Female

DRUGS (1)
  1. INJECTAFER [Suspect]
     Active Substance: FERRIC CARBOXYMALTOSE
     Indication: PRODUCT USED FOR UNKNOWN INDICATION
     Dosage: ?SET AT 400? AND DILUTED IN 250 ML OF SALINE, SINGLE
     Route: 042
     Dates: start: 202106, end: 202106

REACTIONS (7)
  - Dizziness [Unknown]
  - Loss of consciousness [Recovered/Resolved]
  - Cough [Unknown]
  - Lethargy [Unknown]
  - Chest discomfort [Unknown]
  - Maternal exposure during pregnancy [Unknown]
  - Incorrect dose administered [Unknown]

NARRATIVE: CASE EVENT DATE: 202106
